FAERS Safety Report 4893555-4 (Version None)
Quarter: 2006Q1

REPORT INFORMATION
  Report Type: 
  Country: None (occurrence: None)
  Receive Date: 20060124
  Receipt Date: 20060112
  Transmission Date: 20060701
  Serious: Yes (Other)
  Sender: FDA-Public Use
  Company Number: HQWYE313812JAN06

PATIENT
  Age: 20 Year
  Sex: Female

DRUGS (3)
  1. PANTOPRAZOLE SODIUM [Suspect]
     Indication: HELICOBACTER INFECTION
     Dosage: 40 MG 2X PER 1 DAY
     Route: 048
     Dates: start: 20051020, end: 20051026
  2. AMOXICILLIN [Suspect]
     Indication: HELICOBACTER INFECTION
     Dosage: 1000 MG 2X PER 1 DAY
     Route: 048
     Dates: start: 20051020, end: 20051026
  3. CLARITHROMYCIN [Suspect]
     Indication: HELICOBACTER INFECTION
     Dosage: 500 MG 2X PER 1 DAY
     Route: 048
     Dates: start: 20051020, end: 20051026

REACTIONS (3)
  - CONDITION AGGRAVATED [None]
  - MULTIPLE SCLEROSIS [None]
  - VISUAL ACUITY REDUCED [None]
